FAERS Safety Report 6968316-2 (Version None)
Quarter: 2010Q3

REPORT INFORMATION
  Report Type: 
  Country: None (occurrence: None)
  Receive Date: 20100901
  Receipt Date: 20100819
  Transmission Date: 20110219
  Serious: Yes (Death)
  Sender: FDA-Public Use
  Company Number: HA10-196-AE

PATIENT
  Age: 44 Year
  Sex: Male
  Weight: 83 kg

DRUGS (4)
  1. NAPROXEN [Suspect]
     Indication: OSTEOARTHRITIS
     Dosage: 1 TABLET, TID, ORALLY
     Route: 048
     Dates: start: 20071213
  2. CELECOXIB [Suspect]
     Indication: OSTEOARTHRITIS
     Dosage: 1 TABLET, TID, ORALLY
     Route: 048
     Dates: start: 20071213
  3. IBUPROFEN [Suspect]
     Indication: OSTEOARTHRITIS
     Dosage: 1 TABLET, TID, ORALLY
     Route: 048
     Dates: start: 20071213
  4. PLACEBO [Suspect]
     Indication: OSTEOARTHRITIS
     Dosage: 1 TABLET, TID, ORALLY
     Route: 048
     Dates: start: 20071213

REACTIONS (3)
  - ALANINE AMINOTRANSFERASE INCREASED [None]
  - ASPARTATE AMINOTRANSFERASE INCREASED [None]
  - BLOOD PRESSURE INCREASED [None]
